FAERS Safety Report 25543786 (Version 2)
Quarter: 2025Q3

REPORT INFORMATION
  Report Type: Spontaneous
  Country: JP (occurrence: JP)
  Receive Date: 20250711
  Receipt Date: 20250717
  Transmission Date: 20251020
  Serious: Yes (Hospitalization, Other)
  Sender: ACCORD
  Company Number: JP-Accord-493556

PATIENT
  Age: 12 Year
  Sex: Female
  Weight: 45.5 kg

DRUGS (2)
  1. METOPROLOL TARTRATE [Suspect]
     Active Substance: METOPROLOL TARTRATE
     Indication: Graves^ disease
  2. METHIMAZOLE [Suspect]
     Active Substance: METHIMAZOLE
     Indication: Graves^ disease

REACTIONS (2)
  - Thyrotoxic myopathy [Recovered/Resolved]
  - Condition aggravated [Recovered/Resolved]
